FAERS Safety Report 24853542 (Version 1)
Quarter: 2025Q1

REPORT INFORMATION
  Report Type: Report from Study
  Country: CN (occurrence: CN)
  Receive Date: 20250117
  Receipt Date: 20250117
  Transmission Date: 20250408
  Serious: Yes (Other)
  Sender: ROCHE
  Company Number: CN-ROCHE-10000176782

PATIENT
  Age: 83 Year
  Sex: Male

DRUGS (1)
  1. VABYSMO [Suspect]
     Active Substance: FARICIMAB-SVOA
     Indication: Age-related macular degeneration
     Route: 031
     Dates: start: 20241012, end: 20250109

REACTIONS (3)
  - Drug ineffective [Unknown]
  - Ocular discomfort [Unknown]
  - Blindness [Unknown]
